FAERS Safety Report 5746682-3 (Version None)
Quarter: 2008Q2

REPORT INFORMATION
  Report Type: 
  Country: None (occurrence: None)
  Receive Date: 20080522
  Receipt Date: 20080513
  Transmission Date: 20081010
  Serious: Yes (Hospitalization)
  Sender: FDA-Public Use
  Company Number: TR-AVENTIS-200812189EU

PATIENT
  Age: 3 Year
  Sex: Male
  Weight: 11 kg

DRUGS (1)
  1. SUDAFED 12 HOUR [Suspect]

REACTIONS (2)
  - OVERDOSE [None]
  - URINARY RETENTION [None]
